FAERS Safety Report 5334073-9 (Version None)
Quarter: 2007Q2

REPORT INFORMATION
  Report Type: 
  Country: None (occurrence: None)
  Receive Date: 20070524
  Receipt Date: 20070515
  Transmission Date: 20071010
  Serious: Yes (Life-Threatening, Other)
  Sender: FDA-Public Use
  Company Number: GT-ABBOTT-07P-069-0368527-00

PATIENT
  Age: 31 Month
  Sex: Female
  Weight: 14.44 kg

DRUGS (2)
  1. SEVORANE LIQUID FOR INHALATION [Suspect]
     Indication: ANAESTHESIA
     Dosage: BOTTLE; 40 MINUTES DURATION
     Route: 055
     Dates: start: 20070515, end: 20070515
  2. FENTANYL [Concomitant]
     Indication: ANAESTHESIA
     Dosage: 1-3 MCG/HOUR
     Route: 042
     Dates: start: 20070515, end: 20070515

REACTIONS (1)
  - DELAYED RECOVERY FROM ANAESTHESIA [None]
